FAERS Safety Report 10558889 (Version 2)
Quarter: 2014Q4

REPORT INFORMATION
  Report Type: Spontaneous
  Country: AT (occurrence: AT)
  Receive Date: 20141101
  Receipt Date: 20141113
  Transmission Date: 20150529
  Serious: Yes (Other)
  Sender: FDA-Public Use
  Company Number: AT-TEVA-518876ISR

PATIENT
  Age: 75 Year
  Sex: Male
  Weight: 97 kg

DRUGS (7)
  1. THROMBO ASS 100 MG FILMTABLETTEN [Suspect]
     Active Substance: ASPIRIN
     Dosage: 100 MILLIGRAM DAILY; ONE AT NOON
  2. MIXTARD HUMAN 70/30 [Suspect]
     Active Substance: INSULIN HUMAN
     Dosage: 15 IE - 20 IE - 15IE
  3. CIPROFLOXACIN 500 MG FILMTABLETTEN [Suspect]
     Active Substance: CIPROFLOXACIN
     Indication: URINARY TRACT INFECTION
     Dosage: 1000 MILLIGRAM DAILY; ONE IN THE MORNING, ONE IN THE EVENING
  4. AMLODIPINE [Suspect]
     Active Substance: AMLODIPINE BESYLATE
     Dosage: 5 MILLIGRAM DAILY; ONE IN THE MORNING
  5. DIAMICRON MR 30 MG [Suspect]
     Active Substance: GLICLAZIDE
     Dosage: 90 MILLIGRAM DAILY; 3 IN THE MORNING
  6. SIMVASTATIN. [Interacting]
     Active Substance: SIMVASTATIN
     Dosage: ONE IN THE EVENING
  7. ACEMIN 10 MG [Suspect]
     Active Substance: LISINOPRIL
     Dosage: 10 MILLIGRAM DAILY; ONE IN THE MORNING

REACTIONS (4)
  - Hypoglycaemia [Unknown]
  - Fall [Unknown]
  - Femoral neck fracture [Unknown]
  - Drug interaction [Unknown]
